FAERS Safety Report 8521222-4 (Version None)
Quarter: 2012Q3

REPORT INFORMATION
  Report Type: 
  Country: None (occurrence: None)
  Receive Date: 20120712
  Receipt Date: 20120712
  Transmission Date: 20120928
  Serious: Yes (Other)
  Sender: FDA-Public Use
  Company Number: None

PATIENT
  Age: 68 Year
  Sex: Male

DRUGS (3)
  1. ULTRACET [Concomitant]
  2. LATANOPROST [Suspect]
     Indication: GLAUCOMA
     Dosage: ONE DROP, BOTH EYES AT BEDTIME OPHTHALMIC
     Route: 047
     Dates: start: 20120709, end: 20120709
  3. TAMSULOSIN HCL [Concomitant]

REACTIONS (1)
  - DRUG HYPERSENSITIVITY [None]
